FAERS Safety Report 13900736 (Version 1)
Quarter: 2017Q3

REPORT INFORMATION
  Report Type: Spontaneous
  Country: US (occurrence: US)
  Receive Date: 20170824
  Receipt Date: 20170824
  Transmission Date: 20171127
  Serious: No
  Sender: FDA-Public Use
  Company Number: GXBR2017US002123

PATIENT
  Sex: Female
  Weight: 60.32 kg

DRUGS (1)
  1. LORAZEPAM ACTAVIS 2MG [Suspect]
     Active Substance: LORAZEPAM
     Indication: INSOMNIA
     Dosage: 2 DF, QHS
     Route: 065

REACTIONS (1)
  - Drug ineffective [Not Recovered/Not Resolved]
